FAERS Safety Report 6060439-8 (Version None)
Quarter: 2009Q1

REPORT INFORMATION
  Report Type: 
  Country: None (occurrence: None)
  Receive Date: 20090129
  Receipt Date: 20090116
  Transmission Date: 20090719
  Serious: Yes (Hospitalization)
  Sender: FDA-Public Use
  Company Number: 2008PV037282

PATIENT
  Age: 70 Year
  Sex: Male

DRUGS (14)
  1. SYMLIN [Suspect]
     Dosage: 120 MCG; TID; SC, 60 MCG; TID; SC, 120 MCG; TID; SC, 60 MCG; TID; SC
     Route: 058
     Dates: start: 20070723, end: 20070726
  2. SYMLIN [Suspect]
     Dosage: 120 MCG; TID; SC, 60 MCG; TID; SC, 120 MCG; TID; SC, 60 MCG; TID; SC
     Route: 058
     Dates: start: 20080101, end: 20080101
  3. SYMLIN [Suspect]
     Dosage: 120 MCG; TID; SC, 60 MCG; TID; SC, 120 MCG; TID; SC, 60 MCG; TID; SC
     Route: 058
     Dates: start: 20070727, end: 20080201
  4. SYMLIN [Suspect]
     Dosage: 120 MCG; TID; SC, 60 MCG; TID; SC, 120 MCG; TID; SC, 60 MCG; TID; SC
     Route: 058
     Dates: start: 20081101, end: 20081201
  5. HUMULIN 50/50 [Concomitant]
  6. METFORMIN HCL [Concomitant]
  7. ALTACE [Concomitant]
  8. CREON [Concomitant]
  9. DIOVAN HCT [Concomitant]
  10. PROTONIX [Concomitant]
  11. SULAR [Concomitant]
  12. LIPITOR [Concomitant]
  13. ZYRTEC [Concomitant]
  14. ADVAIR DISKUS 100/50 [Concomitant]

REACTIONS (1)
  - PANCREATITIS CHRONIC [None]
